FAERS Safety Report 24613746 (Version 2)
Quarter: 2024Q4

REPORT INFORMATION
  Report Type: Spontaneous
  Country: DE (occurrence: DE)
  Receive Date: 20241113
  Receipt Date: 20241120
  Transmission Date: 20250115
  Serious: Yes (Other)
  Sender: NOVARTIS
  Company Number: DE-IPSEN Group, Research and Development-2024-13302

PATIENT
  Age: 38 Year
  Sex: Male

DRUGS (13)
  1. EVEROLIMUS [Suspect]
     Active Substance: EVEROLIMUS
     Indication: Metastatic renal cell carcinoma
     Dosage: UNK
     Route: 065
     Dates: start: 202406
  2. NIVOLUMAB [Suspect]
     Active Substance: NIVOLUMAB
     Indication: Metastatic renal cell carcinoma
     Dosage: UNK
     Route: 065
     Dates: start: 202405, end: 202406
  3. NIVOLUMAB [Suspect]
     Active Substance: NIVOLUMAB
     Dosage: UNK
     Route: 065
  4. CABOMETYX [Suspect]
     Active Substance: CABOZANTINIB S-MALATE
     Indication: Metastatic renal cell carcinoma
     Dosage: 40 MG AM
     Route: 065
     Dates: start: 20210507
  5. CABOMETYX [Suspect]
     Active Substance: CABOZANTINIB S-MALATE
     Dosage: 20 MG
     Route: 065
     Dates: start: 202109
  6. CABOMETYX [Suspect]
     Active Substance: CABOZANTINIB S-MALATE
     Dosage: 40 MG
     Route: 065
     Dates: start: 202307
  7. CABOMETYX [Suspect]
     Active Substance: CABOZANTINIB S-MALATE
     Dosage: UNK
     Route: 065
     Dates: start: 202405, end: 202406
  8. LENVATINIB [Suspect]
     Active Substance: LENVATINIB
     Indication: Metastatic renal cell carcinoma
     Dosage: 18 MG
     Route: 065
     Dates: start: 202406
  9. LENVATINIB [Suspect]
     Active Substance: LENVATINIB
     Dosage: 14 MG (DOSE REDUCED)
     Route: 065
  10. CABOZANTINIB [Suspect]
     Active Substance: CABOZANTINIB
     Indication: Metastatic renal cell carcinoma
     Dosage: 40 MG AM
     Route: 065
     Dates: start: 20210507
  11. CABOZANTINIB [Suspect]
     Active Substance: CABOZANTINIB
     Dosage: 20 MG
     Route: 065
     Dates: start: 202109
  12. CABOZANTINIB [Suspect]
     Active Substance: CABOZANTINIB
     Dosage: 40 MG
     Route: 065
     Dates: start: 202307
  13. CABOZANTINIB [Suspect]
     Active Substance: CABOZANTINIB
     Dosage: UNK QMO
     Route: 065
     Dates: start: 202405, end: 202406

REACTIONS (6)
  - Metastases to lung [Unknown]
  - Hypothyroidism [Unknown]
  - Stomatitis [Unknown]
  - Dysgeusia [Unknown]
  - Diarrhoea [Unknown]
  - Rash [Unknown]

NARRATIVE: CASE EVENT DATE: 20240601
